FAERS Safety Report 14000011 (Version 1)
Quarter: 2017Q3

REPORT INFORMATION
  Report Type: Other
  Country: US (occurrence: US)
  Receive Date: 20170922
  Receipt Date: 20170922
  Transmission Date: 20171128
  Serious: Yes (Other)
  Sender: FDA-Public Use
  Company Number: US-IMPAX LABORATORIES, INC-2017-IPXL-02727

PATIENT

DRUGS (1)
  1. BUPROPION SR [Suspect]
     Active Substance: BUPROPION HYDROCHLORIDE
     Indication: PRODUCT USED FOR UNKNOWN INDICATION
     Dosage: 200 MG, 2 /DAY
     Route: 065

REACTIONS (6)
  - Product substitution issue [Unknown]
  - Tinnitus [Unknown]
  - Drug ineffective [Unknown]
  - Irritability [Unknown]
  - Visual impairment [Unknown]
  - Insomnia [Unknown]
